FAERS Safety Report 11117209 (Version 2)
Quarter: 2015Q2

REPORT INFORMATION
  Report Type: Spontaneous
  Country: US (occurrence: US)
  Receive Date: 20150515
  Receipt Date: 20150609
  Transmission Date: 20150821
  Serious: Yes (Hospitalization, Other)
  Sender: FDA-Public Use
  Company Number: US-009507513-1201USA00401

PATIENT
  Sex: Female

DRUGS (4)
  1. FOSAMAX [Suspect]
     Active Substance: ALENDRONATE SODIUM
     Indication: OSTEOPENIA
     Dosage: 10 MG, QD
     Route: 048
     Dates: start: 1998
  2. FOSAMAX PLUS D [Suspect]
     Active Substance: ALENDRONATE SODIUM\CHOLECALCIFEROL
     Indication: OSTEOPENIA
     Dosage: UNK
     Route: 048
     Dates: start: 2005
  3. FOSAMAX [Suspect]
     Active Substance: ALENDRONATE SODIUM
     Indication: OSTEOPOROSIS
     Dosage: 70 MG, QW
     Route: 048
     Dates: start: 20050329, end: 20100216
  4. ALENDRONATE SODIUM. [Suspect]
     Active Substance: ALENDRONATE SODIUM
     Indication: OSTEOPENIA
     Dosage: 70 MG, QW
     Route: 048
     Dates: start: 2008, end: 2010

REACTIONS (22)
  - Medical device removal [Unknown]
  - Osteoarthritis [Unknown]
  - Large intestine polyp [Unknown]
  - Femur fracture [Recovered/Resolved]
  - Cholecystectomy [Unknown]
  - Hysterectomy [Unknown]
  - Lumbar vertebral fracture [Unknown]
  - Internal fixation of fracture [Unknown]
  - Pulmonary granuloma [Unknown]
  - Muscle strain [Unknown]
  - Hypothyroidism [Unknown]
  - Mitral valve prolapse [Unknown]
  - Meniscus operation [Unknown]
  - Leukocytosis [Unknown]
  - Hypokalaemia [Unknown]
  - Gastrooesophageal reflux disease [Unknown]
  - Intramedullary rod insertion [Unknown]
  - Device failure [Unknown]
  - Dyslipidaemia [Unknown]
  - Hypertension [Unknown]
  - Supraventricular tachycardia [Unknown]
  - Tricuspid valve incompetence [Unknown]

NARRATIVE: CASE EVENT DATE: 200603
